FAERS Safety Report 9763026 (Version 2)
Quarter: 2013Q4

REPORT INFORMATION
  Report Type: Spontaneous
  Country: US (occurrence: US)
  Receive Date: 20131216
  Receipt Date: 20131216
  Transmission Date: 20140711
  Serious: No
  Sender: FDA-Public Use
  Company Number: US-BAXTER-2013BAX047389

PATIENT
  Age: 64 Year
  Sex: Male

DRUGS (8)
  1. GAMMAGARD LIQUID [Suspect]
     Indication: CHRONIC INFLAMMATORY DEMYELINATING POLYRADICULONEUROPATHY
     Route: 042
     Dates: start: 20131014, end: 20131014
  2. GAMMAGARD LIQUID [Suspect]
     Indication: OFF LABEL USE
     Route: 042
     Dates: start: 20131125, end: 20131125
  3. GAMMAGARD LIQUID [Suspect]
     Route: 042
  4. GAMMAGARD LIQUID [Suspect]
     Route: 042
     Dates: start: 20131104
  5. BENADRYL [Concomitant]
     Indication: PREMEDICATION
     Dosage: BEFORE EVERY INFUSION
     Route: 048
  6. BENADRYL [Concomitant]
     Indication: URTICARIA
  7. BENADRYL [Concomitant]
     Indication: URTICARIA
  8. TYLENOL [Concomitant]
     Indication: PREMEDICATION
     Dosage: BEFORE EVERY INFUSION
     Route: 048

REACTIONS (2)
  - Urticaria [Recovered/Resolved]
  - Urticaria [Recovered/Resolved]
